FAERS Safety Report 17389916 (Version 1)
Quarter: 2020Q1

REPORT INFORMATION
  Report Type: Spontaneous
  Country: US (occurrence: US)
  Receive Date: 20200123
  Receipt Date: 20200123
  Transmission Date: 20200409
  Serious: Yes (Hospitalization)
  Sender: FDA-Public Use
  Company Number: None

PATIENT
  Age: 8 Year
  Sex: Female
  Weight: 32.4 kg

DRUGS (5)
  1. VINCRISTINE SULFATE. [Suspect]
     Active Substance: VINCRISTINE SULFATE
     Dates: end: 20191223
  2. DEXAMETHASONE. [Suspect]
     Active Substance: DEXAMETHASONE
     Dates: end: 20191226
  3. ONCASPAR [Suspect]
     Active Substance: PEGASPARGASE
     Dosage: ?          OTHER DOSE:2722.5 UNITS;?
     Dates: end: 20191205
  4. CYTARABINE. [Suspect]
     Active Substance: CYTARABINE
     Dates: end: 20191202
  5. METHOTREXATE. [Suspect]
     Active Substance: METHOTREXATE
     Dates: end: 20191209

REACTIONS (3)
  - Constipation [None]
  - Hypotriglyceridaemia [None]
  - Abdominal pain [None]

NARRATIVE: CASE EVENT DATE: 20191226
